FAERS Safety Report 16625578 (Version 1)
Quarter: 2019Q3

REPORT INFORMATION
  Report Type: Spontaneous
  Country: US (occurrence: US)
  Receive Date: 20190724
  Receipt Date: 20190724
  Transmission Date: 20191004
  Serious: Yes (Hospitalization, Other)
  Sender: FDA-Public Use
  Company Number: US-ABBVIE-19P-163-2857101-00

PATIENT
  Age: 29 Year
  Sex: Male

DRUGS (13)
  1. HYDROXYZINE [Concomitant]
     Active Substance: HYDROXYZINE HYDROCHLORIDE
     Indication: PRODUCT USED FOR UNKNOWN INDICATION
  2. FENOFIBRATE. [Concomitant]
     Active Substance: FENOFIBRATE
     Indication: HYPERLIPIDAEMIA
  3. TRAZODONE [Concomitant]
     Active Substance: TRAZODONE HYDROCHLORIDE
     Indication: INSOMNIA
  4. LEVETIRACETAM. [Concomitant]
     Active Substance: LEVETIRACETAM
     Indication: PRODUCT USED FOR UNKNOWN INDICATION
  5. LAMOTRIGINE. [Suspect]
     Active Substance: LAMOTRIGINE
     Indication: JUVENILE MYOCLONIC EPILEPSY
     Route: 065
  6. PHENYTOIN. [Suspect]
     Active Substance: PHENYTOIN
     Indication: JUVENILE MYOCLONIC EPILEPSY
     Route: 065
  7. GABAPENTIN. [Suspect]
     Active Substance: GABAPENTIN
     Indication: JUVENILE MYOCLONIC EPILEPSY
     Route: 065
  8. CLONAZEPAM. [Suspect]
     Active Substance: CLONAZEPAM
     Indication: JUVENILE MYOCLONIC EPILEPSY
     Route: 065
  9. TOPIRAMATE. [Suspect]
     Active Substance: TOPIRAMATE
     Indication: JUVENILE MYOCLONIC EPILEPSY
     Route: 065
  10. VALPROIC ACID. [Suspect]
     Active Substance: VALPROIC ACID
     Indication: JUVENILE MYOCLONIC EPILEPSY
     Route: 065
  11. LACOSAMIDE. [Suspect]
     Active Substance: LACOSAMIDE
     Indication: JUVENILE MYOCLONIC EPILEPSY
     Dosage: TITRATED TO 500 MG
     Route: 065
  12. ZONISAMIDE. [Suspect]
     Active Substance: ZONISAMIDE
     Indication: JUVENILE MYOCLONIC EPILEPSY
     Route: 065
  13. CARBAMAZEPINE. [Suspect]
     Active Substance: CARBAMAZEPINE
     Indication: JUVENILE MYOCLONIC EPILEPSY
     Route: 065

REACTIONS (7)
  - Psychomotor retardation [Recovered/Resolved]
  - Drug ineffective [Unknown]
  - Disorientation [Recovered/Resolved]
  - Dyscalculia [Recovered/Resolved]
  - Memory impairment [Recovered/Resolved]
  - Confusional state [Recovered/Resolved]
  - Petit mal epilepsy [Recovered/Resolved]
